FAERS Safety Report 9457314 (Version 1)
Quarter: 2013Q3

REPORT INFORMATION
  Report Type: Spontaneous
  Country: BR (occurrence: None)
  Receive Date: 20130812
  Receipt Date: 20130812
  Transmission Date: 20140515
  Serious: Yes (Other)
  Sender: FDA-Public Use
  Company Number: M-EU-2013080126

PATIENT
  Age: 86 Year
  Sex: Female

DRUGS (1)
  1. THIOCTACID [Suspect]
     Indication: PAIN IN EXTREMITY

REACTIONS (1)
  - Blood glucose increased [None]
